FAERS Safety Report 7862510-4 (Version None)
Quarter: 2011Q4

REPORT INFORMATION
  Report Type: 
  Country: None (occurrence: None)
  Receive Date: 20111027
  Receipt Date: 20101104
  Transmission Date: 20120403
  Serious: Yes (Hospitalization)
  Sender: FDA-Public Use
  Company Number: US-AMGEN-USASP2010003532

PATIENT
  Age: 45 Year
  Sex: Female

DRUGS (3)
  1. ENBREL [Suspect]
     Dosage: UNK
     Dates: start: 20101016
  2. SORIATANE [Concomitant]
  3. ENBREL [Suspect]
     Indication: PSORIASIS
     Dosage: 50 MG, QWK
     Dates: start: 20040205

REACTIONS (8)
  - IMMUNE SYSTEM DISORDER [None]
  - OEDEMA PERIPHERAL [None]
  - PSORIASIS [None]
  - SINUSITIS [None]
  - ONYCHOCLASIS [None]
  - INJECTION SITE PAIN [None]
  - PNEUMONIA [None]
  - ALOPECIA [None]
